FAERS Safety Report 14264228 (Version 2)
Quarter: 2018Q1

REPORT INFORMATION
  Report Type: Spontaneous
  Country: JP (occurrence: JP)
  Receive Date: 20171208
  Receipt Date: 20180109
  Transmission Date: 20180508
  Serious: Yes (Hospitalization, Other)
  Sender: FDA-Public Use
  Company Number: JP-PFIZER INC-2017517451

PATIENT
  Age: 68 Year
  Sex: Male
  Weight: 38.7 kg

DRUGS (11)
  1. RIMATIL [Concomitant]
     Active Substance: BUCILLAMINE
     Dosage: 100 MG, TWICE DAILY
     Route: 048
     Dates: start: 2003
  2. DIART [Concomitant]
     Active Substance: AZOSEMIDE
     Dosage: 15 MG, ONCE DAILY
     Route: 048
  3. PROGRAF [Concomitant]
     Active Substance: TACROLIMUS\TACROLIMUS ANHYDROUS
     Dosage: 1 MG, ONCE DAILY
     Route: 048
     Dates: start: 20170620, end: 20171123
  4. AZULFIDINE [Concomitant]
     Active Substance: SULFASALAZINE
     Dosage: 500 MG, TWICE DAILY
     Route: 048
     Dates: start: 2003
  5. GASMOTIN [Concomitant]
     Active Substance: MOSAPRIDE CITRATE
     Dosage: 5 MG, TWICE DAILY
     Route: 048
  6. FOLIAMIN [Concomitant]
     Active Substance: FOLIC ACID
     Dosage: 5 MG, WEEKLY
     Route: 048
     Dates: start: 201111
  7. SPIRONOLACTONE. [Concomitant]
     Active Substance: SPIRONOLACTONE
     Dosage: 12.5 MG, ONCE DAILY
     Route: 048
  8. RHEUMATREX [Suspect]
     Active Substance: METHOTREXATE SODIUM
     Dosage: 10 MG, WEEKLY
     Route: 048
     Dates: start: 201111, end: 20171124
  9. NEXIUM [Concomitant]
     Active Substance: ESOMEPRAZOLE MAGNESIUM
     Dosage: 20 MG, ONCE DAILY
     Route: 048
     Dates: end: 20171123
  10. TAKECAB [Concomitant]
     Active Substance: VONOPRAZAN FUMURATE
     Dosage: UNK
     Dates: start: 20171123
  11. FOSAMAC [Concomitant]
     Active Substance: ALENDRONATE SODIUM
     Dosage: 35 MG, WEEKLY
     Route: 048
     Dates: start: 201201

REACTIONS (6)
  - Encapsulating peritoneal sclerosis [Recovering/Resolving]
  - Weight decreased [Unknown]
  - Intestinal stenosis [Unknown]
  - Decreased appetite [Unknown]
  - Oesophagitis [Unknown]
  - Chronic gastritis [Unknown]

NARRATIVE: CASE EVENT DATE: 20171117
